FAERS Safety Report 6942975-2 (Version None)
Quarter: 2010Q3

REPORT INFORMATION
  Report Type: 
  Country: None (occurrence: None)
  Receive Date: 20100823
  Receipt Date: 20100813
  Transmission Date: 20110219
  Serious: Yes (Death, Hospitalization)
  Sender: FDA-Public Use
  Company Number: 104512

PATIENT
  Age: 43 Year
  Sex: Female

DRUGS (1)
  1. CYCLOSPORINE [Suspect]
     Indication: IMMUNOSUPPRESSANT DRUG THERAPY

REACTIONS (5)
  - CONDITION AGGRAVATED [None]
  - LUNG INFECTION PSEUDOMONAL [None]
  - MULTIPLE-DRUG RESISTANCE [None]
  - NO THERAPEUTIC RESPONSE [None]
  - PSEUDOMONAL SEPSIS [None]
